FAERS Safety Report 9858224 (Version 1)
Quarter: 2014Q1

REPORT INFORMATION
  Report Type: Spontaneous
  Country: CH (occurrence: None)
  Receive Date: 20140129
  Receipt Date: 20140129
  Transmission Date: 20141002
  Serious: Yes (Life-Threatening, Hospitalization)
  Sender: FDA-Public Use
  Company Number: 2014010062

PATIENT
  Age: 82 Year
  Sex: Male
  Weight: 82 kg

DRUGS (7)
  1. TOREM (TORASEMIDE) [Suspect]
     Indication: CARDIAC FAILURE
     Dosage: 10 MG, (5 MG, 2 IN 1 D), ORAL
     Route: 048
     Dates: start: 201312, end: 20131206
  2. CO-ENATEC [Suspect]
     Indication: CARDIAC FAILURE
     Dosage: 0.5 DOSAGE FORMS (0.5 DOSAGE FORMS, 1 IN 1 D), ORAL
     Route: 048
     Dates: start: 201312, end: 20131206
  3. LASIX (FUROSEMIDE) [Suspect]
     Indication: CARDIAC FAILURE
     Dosage: 40 MG (40 MG, 1 IN 1 D), ORAL
     Route: 048
     Dates: start: 20131203, end: 20131206
  4. TRANSIPEG FORTE PULVER (MACROGOL 3350, SODIUM BICARBONATE, POTASSIUM CHLORIDE, SODIUIM CHLORIDE, SODIUM SULFATE ANHYDROUS)? [Suspect]
     Dosage: 1 DOSAGE FORMS (1 DOSAGE FORMS, 1 IN 1 D), ORAL
     Route: 048
     Dates: start: 201312
  5. PLAVIX (CLOPIDOGREL SULFATE (FILM COATED TABLET) [Concomitant]
  6. CLEXANE (ENOXAPARIN SODIUM) [Concomitant]
  7. BELOC ZOK RETARD (METOPROLOL SUCCINATE) [Concomitant]

REACTIONS (13)
  - Hypernatraemia [None]
  - Hypokalaemia [None]
  - Bradycardia [None]
  - General physical health deterioration [None]
  - Dehydration [None]
  - Weight decreased [None]
  - Arrhythmia [None]
  - Renal failure chronic [None]
  - Pneumonia aspiration [None]
  - Sepsis [None]
  - Pneumonitis [None]
  - Bundle branch block right [None]
  - Atrial fibrillation [None]
